FAERS Safety Report 13703246 (Version 1)
Quarter: 2017Q2

REPORT INFORMATION
  Report Type: Spontaneous
  Country: GB (occurrence: GB)
  Receive Date: 20170629
  Receipt Date: 20170629
  Transmission Date: 20170830
  Serious: Yes (Hospitalization, Other)
  Sender: FDA-Public Use
  Company Number: GB-MYLANLABS-2017M1038538

PATIENT

DRUGS (4)
  1. RITUXIMAB [Suspect]
     Active Substance: RITUXIMAB
     Dosage: 1G
     Route: 065
     Dates: start: 201501
  2. PREDNISOLONE. [Suspect]
     Active Substance: PREDNISOLONE
     Indication: DERMATOMYOSITIS
     Dosage: 10MG DAILY
     Route: 065
     Dates: start: 201501
  3. AZATHIOPRINE. [Suspect]
     Active Substance: AZATHIOPRINE
     Indication: DERMATOMYOSITIS
     Dosage: 100MG DAILY
     Route: 065
     Dates: start: 201501
  4. RITUXIMAB [Suspect]
     Active Substance: RITUXIMAB
     Indication: DERMATOMYOSITIS
     Dosage: 1G X 2
     Route: 065
     Dates: start: 201403

REACTIONS (3)
  - Human herpesvirus 6 infection [Recovered/Resolved]
  - Anterograde amnesia [Recovering/Resolving]
  - Encephalitis viral [Recovered/Resolved]

NARRATIVE: CASE EVENT DATE: 2015
